FAERS Safety Report 18530890 (Version 1)
Quarter: 2020Q4

REPORT INFORMATION
  Report Type: Report from Study
  Country: GB (occurrence: GB)
  Receive Date: 20201121
  Receipt Date: 20201121
  Transmission Date: 20210114
  Serious: Yes (Other)
  Sender: FDA-Public Use
  Company Number: NVSC2020GB307887

PATIENT
  Sex: Female

DRUGS (1)
  1. HYRIMOZ [Suspect]
     Active Substance: ADALIMUMAB-ADAZ
     Indication: CROHN^S DISEASE
     Dosage: 40 MG, Q2W
     Route: 058

REACTIONS (2)
  - Product dose omission issue [Unknown]
  - Crohn^s disease [Unknown]
